FAERS Safety Report 7491985-8 (Version None)
Quarter: 2011Q2

REPORT INFORMATION
  Report Type: 
  Country: None (occurrence: None)
  Receive Date: 20110519
  Receipt Date: 20110506
  Transmission Date: 20111010
  Serious: Yes (Other)
  Sender: FDA-Public Use
  Company Number: CA-JNJFOC-20110504468

PATIENT
  Sex: Female
  Weight: 81 kg

DRUGS (2)
  1. REMICADE [Suspect]
     Dosage: 2ND INFUSION
     Route: 042
     Dates: start: 20110506
  2. REMICADE [Suspect]
     Indication: CROHN'S DISEASE
     Route: 042
     Dates: start: 20110401

REACTIONS (7)
  - DYSPNOEA [None]
  - INFUSION RELATED REACTION [None]
  - CHEST PAIN [None]
  - VOMITING [None]
  - HOT FLUSH [None]
  - HYPOAESTHESIA [None]
  - NAUSEA [None]
